FAERS Safety Report 7355137-4 (Version None)
Quarter: 2011Q1

REPORT INFORMATION
  Report Type: 
  Country: None (occurrence: None)
  Receive Date: 20110307
  Receipt Date: 20100319
  Transmission Date: 20110831
  Serious: No
  Sender: FDA-Public Use
  Company Number: AEUSA201000081

PATIENT
  Age: 59 Year
  Sex: Female
  Weight: 50.8 kg

DRUGS (1)
  1. PROLASTIN-C [Suspect]
     Indication: ALPHA-1 ANTI-TRYPSIN DEFICIENCY
     Dosage: 6105 ;QW;IV
     Route: 042
     Dates: start: 20100316, end: 20100316

REACTIONS (3)
  - DYSPNOEA [None]
  - HEADACHE [None]
  - ARTHRALGIA [None]
